FAERS Safety Report 24988241 (Version 1)
Quarter: 2025Q1

REPORT INFORMATION
  Report Type: Other
  Country: CA (occurrence: CA)
  Receive Date: 20250220
  Receipt Date: 20250220
  Transmission Date: 20250408
  Serious: Yes (Hospitalization)
  Sender: TOLMAR
  Company Number: CA-20250123-8ed3aa

PATIENT
  Age: 81 Year
  Sex: Male

DRUGS (5)
  1. ELIGARD [Suspect]
     Active Substance: LEUPROLIDE ACETATE
     Indication: Prostate cancer
     Dosage: 22.5MG EVERY 3 MONTHS
     Route: 058
     Dates: start: 20241028
  2. ELIGARD [Suspect]
     Active Substance: LEUPROLIDE ACETATE
     Dosage: 22.5MG EVERY 3 MONTHS
     Route: 058
     Dates: start: 20230613
  3. ELIGARD [Suspect]
     Active Substance: LEUPROLIDE ACETATE
     Dosage: 22.5MG EVERY 3 MONTHS
     Route: 058
     Dates: start: 20250130
  4. ELIGARD [Suspect]
     Active Substance: LEUPROLIDE ACETATE
     Indication: Prostate cancer
  5. CORTISONE [Concomitant]
     Active Substance: CORTISONE
     Indication: Asthma

REACTIONS (4)
  - Pneumonia [Unknown]
  - Gastrointestinal haemorrhage [Unknown]
  - Gastrointestinal polyp [Recovered/Resolved]
  - Intentional product use issue [Recovered/Resolved]

NARRATIVE: CASE EVENT DATE: 20250116
